FAERS Safety Report 8964127 (Version 1)
Quarter: 2012Q4

REPORT INFORMATION
  Report Type: Report from Study
  Country: IT (occurrence: IT)
  Receive Date: 20121213
  Receipt Date: 20121213
  Transmission Date: 20130627
  Serious: Yes (Hospitalization)
  Sender: FDA-Public Use
  Company Number: IT-GLAXOSMITHKLINE-B0851676A

PATIENT
  Age: 50 Year
  Sex: Female
  Weight: 75 kg

DRUGS (12)
  1. LAPATINIB [Suspect]
     Indication: PRODUCT USED FOR UNKNOWN INDICATION
     Dosage: 1250MG per day
     Dates: start: 20090911, end: 20090928
  2. DOCETAXEL [Suspect]
     Indication: BREAST CANCER METASTATIC
     Dosage: 90MG per day
     Route: 042
     Dates: start: 20080305
  3. TRASTUZUMAB [Suspect]
     Indication: BREAST CANCER METASTATIC
     Dosage: 450MG per day
     Route: 042
     Dates: start: 20090305
  4. CAPECITABINE [Suspect]
     Indication: PRODUCT USED FOR UNKNOWN INDICATION
     Dosage: 3000MG per day
     Route: 065
     Dates: start: 20090911, end: 20090923
  5. RANITIDINE [Concomitant]
     Dosage: 50MG per day
     Dates: start: 20090304
  6. GRANISETRON [Concomitant]
     Dosage: 2MG per day
     Dates: start: 20090305
  7. DEXAMETHASONE [Concomitant]
     Dosage: 25MG per day
     Dates: start: 20090304
  8. OLMESARTAN MEDOXOMIL [Concomitant]
  9. LERCANIDIPINE [Concomitant]
  10. PREDNISONE [Concomitant]
     Dosage: 4MG per day
     Dates: start: 20090304
  11. LANSOPRAZOLE [Concomitant]
     Dosage: 30MG per day
     Dates: start: 20090304
  12. FUROSEMIDE [Concomitant]
     Dosage: 25MG per day
     Dates: start: 20090817

REACTIONS (2)
  - Asthenia [Not Recovered/Not Resolved]
  - Dyspnoea [Recovered/Resolved with Sequelae]
